FAERS Safety Report 20729241 (Version 1)
Quarter: 2022Q2

REPORT INFORMATION
  Report Type: Spontaneous
  Country: FR (occurrence: FR)
  Receive Date: 20220420
  Receipt Date: 20220420
  Transmission Date: 20220721
  Serious: Yes (Life-Threatening)
  Sender: FDA-Public Use
  Company Number: None

PATIENT
  Age: 44 Year
  Sex: Male
  Weight: 75 kg

DRUGS (3)
  1. ZYPADHERA [Suspect]
     Active Substance: OLANZAPINE PAMOATE
     Indication: Schizophrenia
     Dosage: 405 MG, OTHER (ONCE IN 21 DAYS; 405 MG/21 J)
     Route: 065
     Dates: start: 20201014, end: 20220325
  2. ZYPADHERA [Suspect]
     Active Substance: OLANZAPINE PAMOATE
     Indication: Schizophrenia
     Dosage: 405 MG, OTHER (ONCE IN 21 DAYS; 405 MG/21 J)
     Route: 065
     Dates: start: 20201014, end: 20220325
  3. ZYPADHERA [Suspect]
     Active Substance: OLANZAPINE PAMOATE
     Indication: Schizophrenia
     Dosage: 405 MG, OTHER (ONCE IN 21 DAYS; 405 MG/21 J)
     Route: 065
     Dates: start: 20201014, end: 20220325

REACTIONS (5)
  - Respiratory distress [Recovered/Resolved]
  - Altered state of consciousness [Recovered/Resolved]
  - Accidental poisoning [Recovered/Resolved]
  - Incorrect route of product administration [Recovered/Resolved]
  - Product administration error [Recovered/Resolved]

NARRATIVE: CASE EVENT DATE: 20220325
